FAERS Safety Report 5648344-X (Version None)
Quarter: 2008Q1

REPORT INFORMATION
  Report Type: 
  Country: None (occurrence: None)
  Receive Date: 20080303
  Receipt Date: 20080303
  Transmission Date: 20080703
  Serious: Yes (Hospitalization)
  Sender: FDA-Public Use
  Company Number: None

PATIENT
  Age: 3 Year
  Sex: Male
  Weight: 21.7727 kg

DRUGS (1)
  1. DG PAIN RELIEF ACETAMINOPHEN 80 MG DOLLAR GENERAL [Suspect]
     Indication: MALAISE
     Dosage: BY ME 240MG 3 PILLS EVERY 6 HOURS PO BY HIMSELF 11 PILLS 880 MG PO
     Route: 048
     Dates: start: 20071230, end: 20071231

REACTIONS (3)
  - ACCIDENTAL DRUG INTAKE BY CHILD [None]
  - ACCIDENTAL OVERDOSE [None]
  - FAILURE OF CHILD RESISTANT MECHANISM FOR PHARMACEUTICAL PRODUCT [None]
